FAERS Safety Report 16706336 (Version 1)
Quarter: 2019Q3

REPORT INFORMATION
  Report Type: Spontaneous
  Country: ES (occurrence: ES)
  Receive Date: 20190815
  Receipt Date: 20190815
  Transmission Date: 20191004
  Serious: Yes (Other)
  Sender: FDA-Public Use
  Company Number: ES-PFIZER INC-2019344841

PATIENT
  Age: 13 Year
  Sex: Female

DRUGS (3)
  1. KETOLAR [Suspect]
     Active Substance: KETAMINE HYDROCHLORIDE
     Indication: SEDATION
     Dosage: UNK
     Route: 042
     Dates: start: 20190712, end: 20190712
  2. ATROPINA BRAUN [Suspect]
     Active Substance: ATROPINE SULFATE
     Indication: SEDATION
     Dosage: UNK
     Route: 042
     Dates: start: 20190712, end: 20190712
  3. MIDAZOLAM NORMON [Suspect]
     Active Substance: MIDAZOLAM HYDROCHLORIDE
     Indication: SEDATION
     Dosage: UNK
     Route: 042
     Dates: start: 20190712, end: 20190712

REACTIONS (1)
  - Face oedema [Recovered/Resolved]

NARRATIVE: CASE EVENT DATE: 20190712
